FAERS Safety Report 4822189-2 (Version None)
Quarter: 2005Q4

REPORT INFORMATION
  Report Type: 
  Country: None (occurrence: None)
  Receive Date: 20051103
  Receipt Date: 20051014
  Transmission Date: 20060501
  Serious: Yes (Other)
  Sender: FDA-Public Use
  Company Number: USA0510109771

PATIENT
  Age: 51 Year
  Sex: Male
  Weight: 77 kg

DRUGS (9)
  1. XIGRIS [Suspect]
     Indication: SEPSIS
     Dosage: 24 UG/KG/HR
     Dates: start: 20050802, end: 20050806
  2. ALPRAZOLAM [Concomitant]
  3. METRONIDAZOLE [Concomitant]
  4. FLUCONAZOLE [Concomitant]
  5. SODIUM BICARBONATE [Concomitant]
  6. PANTOPRAZOLE [Concomitant]
  7. DOUBTAMINE [Concomitant]
  8. VASOPRESSIN INJECTION [Concomitant]
  9. NOREPINEPHRINE [Concomitant]

REACTIONS (15)
  - ACTIVATED PARTIAL THROMBOPLASTIN TIME PROLONGED [None]
  - CARDIAC INDEX INCREASED [None]
  - CENTRAL VENOUS PRESSURE INCREASED [None]
  - CULTURE STOOL POSITIVE [None]
  - ENTEROCOCCAL INFECTION [None]
  - HAEMATOCRIT DECREASED [None]
  - HAEMOGLOBIN DECREASED [None]
  - HAEMORRHAGE INTRACRANIAL [None]
  - INTERNATIONAL NORMALISED RATIO DECREASED [None]
  - PATHOGEN RESISTANCE [None]
  - PLATELET COUNT DECREASED [None]
  - PROTHROMBIN TIME PROLONGED [None]
  - STREPTOCOCCAL INFECTION [None]
  - THERAPY NON-RESPONDER [None]
  - WHITE BLOOD CELL COUNT INCREASED [None]
